FAERS Safety Report 10022460 (Version 3)
Quarter: 2015Q1

REPORT INFORMATION
  Report Type: Report from Study
  Country: BE (occurrence: BE)
  Receive Date: 20140319
  Receipt Date: 20150128
  Transmission Date: 20150720
  Serious: Yes (Hospitalization)
  Sender: FDA-Public Use
  Company Number: BE-ABBVIE-13P-013-1040929-00

PATIENT
  Age: 57 Year
  Sex: Female
  Weight: 64 kg

DRUGS (27)
  1. TRAZODONE [Concomitant]
     Active Substance: TRAZODONE HYDROCHLORIDE
     Indication: INSOMNIA
     Dates: start: 2004, end: 20100108
  2. DOVOBET [Concomitant]
     Active Substance: BETAMETHASONE\CALCIPOTRIENE
     Indication: PSORIASIS
     Route: 061
     Dates: start: 2011, end: 2013
  3. FURADANTINE [Concomitant]
     Active Substance: NITROFURANTOIN
     Indication: DYSURIA
     Dates: start: 2012, end: 2012
  4. MYOLASTAN [Concomitant]
     Active Substance: TETRAZEPAM
     Indication: ANXIETY
     Dates: start: 2005, end: 201101
  5. VOLTAREN [Concomitant]
     Active Substance: DICLOFENAC SODIUM
     Indication: RADIUS FRACTURE
     Dates: start: 20090402
  6. MONURIL [Concomitant]
     Active Substance: FOSFOMYCIN SODIUM
     Indication: CYSTITIS
     Dates: start: 2012, end: 201212
  7. PROPANOLOL HYDROCHLORIDE [Concomitant]
     Active Substance: PROPRANOLOL HYDROCHLORIDE
     Indication: PROPHYLAXIS
     Dates: start: 2012
  8. LYSANXIA [Concomitant]
     Active Substance: PRAZEPAM
     Dates: start: 2011
  9. CYMBALTA [Concomitant]
     Active Substance: DULOXETINE HYDROCHLORIDE
     Indication: ANXIETY
     Dates: start: 2008
  10. SEROQUEL [Concomitant]
     Active Substance: QUETIAPINE FUMARATE
     Indication: MOOD SWINGS
  11. TOPAMAX [Concomitant]
     Active Substance: TOPIRAMATE
     Indication: MIGRAINE
  12. MYOLASTAN [Concomitant]
     Active Substance: TETRAZEPAM
     Indication: INSOMNIA
     Dates: start: 20110525, end: 2012
  13. CYANOCOBALAMIN. [Concomitant]
     Active Substance: CYANOCOBALAMIN
     Indication: VITAMIN B12 DEFICIENCY
     Dates: start: 2010, end: 2013
  14. PANADOL PLUS [Concomitant]
     Indication: PAIN
     Dates: start: 20110525
  15. INDERAL [Concomitant]
     Active Substance: PROPRANOLOL HYDROCHLORIDE
     Indication: PROPHYLAXIS
     Dates: start: 2011, end: 2012
  16. CRANBERRY AKUT [Concomitant]
     Indication: PROPHYLAXIS
     Dates: start: 20120613
  17. HUMIRA [Suspect]
     Active Substance: ADALIMUMAB
     Indication: CROHN^S DISEASE
     Route: 058
     Dates: start: 20080506
  18. DAFALGAN KINDER [Concomitant]
     Indication: PAIN
     Dates: start: 2012, end: 2013
  19. TRAZODONE [Concomitant]
     Active Substance: TRAZODONE HYDROCHLORIDE
     Dates: start: 2011
  20. ZOLPIDEM [Concomitant]
     Active Substance: ZOLPIDEM\ZOLPIDEM TARTRATE
     Indication: ANXIETY
     Dates: start: 2007
  21. LYSANXIA [Concomitant]
     Active Substance: PRAZEPAM
     Indication: ANXIETY
     Dates: start: 2008, end: 2011
  22. IMITREX [Concomitant]
     Active Substance: SUMATRIPTAN\SUMATRIPTAN SUCCINATE
     Indication: HEADACHE
     Dates: start: 2009
  23. BICLAR [Concomitant]
     Active Substance: CLARITHROMYCIN
     Indication: INFECTION
     Dates: start: 201203, end: 201203
  24. TAVANIC [Concomitant]
     Active Substance: LEVOFLOXACIN
     Indication: URINARY TRACT INFECTION
  25. DEPAKINE CHRONO [Concomitant]
     Active Substance: VALPROATE SODIUM
     Indication: MIGRAINE
     Dates: start: 20110525
  26. STILNOCT [Concomitant]
     Active Substance: ZOLPIDEM TARTRATE
     Indication: INSOMNIA
     Dates: start: 20110525
  27. ENTEROL [Concomitant]
     Indication: DIARRHOEA
     Dosage: 1 TABLET
     Dates: start: 20110525

REACTIONS (1)
  - Subileus [Recovered/Resolved]

NARRATIVE: CASE EVENT DATE: 20121219
